FAERS Safety Report 15291698 (Version 1)
Quarter: 2018Q3

REPORT INFORMATION
  Report Type: Spontaneous
  Country: DE (occurrence: DE)
  Receive Date: 20180817
  Receipt Date: 20180817
  Transmission Date: 20181010
  Serious: Yes (Death, Hospitalization)
  Sender: FDA-Public Use
  Company Number: PHHY2018DE073549

PATIENT
  Age: 74 Year
  Sex: Male
  Weight: 57 kg

DRUGS (7)
  1. COTRIM [Concomitant]
     Active Substance: SULFAMETHOXAZOLE\TRIMETHOPRIM
     Indication: DECUBITUS ULCER
     Dosage: UNK
     Route: 065
  2. METHOTREXATE. [Suspect]
     Active Substance: METHOTREXATE
     Dosage: 25 MG, QW (ALWAYS ON THE WEEKEND)
     Route: 058
  3. FLUCLOXACILLIN [Concomitant]
     Active Substance: FLUCLOXACILLIN
     Indication: KLEBSIELLA INFECTION
     Dosage: UNK
     Route: 065
  4. NOVALGIN (METAMIZOLE SODIUM) [Concomitant]
     Active Substance: METAMIZOLE SODIUM
     Indication: PRODUCT USED FOR UNKNOWN INDICATION
     Dosage: UNK
     Route: 065
  5. METHOTREXATE. [Suspect]
     Active Substance: METHOTREXATE
     Indication: RHEUMATOID ARTHRITIS
     Dosage: 25 MG, TOTAL (IN ADDITION TO REGULAR 25 MILLIGRAM PER WEEK (RESULTING IN 3 MTX 25 MG INJECTIONS)
     Route: 058
  6. FOLIC ACID. [Concomitant]
     Active Substance: FOLIC ACID
     Indication: PRODUCT USED FOR UNKNOWN INDICATION
     Dosage: UNK
     Route: 065
  7. PREDNISOLONE. [Concomitant]
     Active Substance: PREDNISOLONE
     Indication: PRODUCT USED FOR UNKNOWN INDICATION
     Dosage: 5 MG, UNK
     Route: 065

REACTIONS (7)
  - Acute kidney injury [Unknown]
  - Inappropriate schedule of drug administration [Fatal]
  - Anaemia [Unknown]
  - Thrombocytopenia [Unknown]
  - Septic shock [Fatal]
  - Accidental overdose [Fatal]
  - Leukopenia [Unknown]

NARRATIVE: CASE EVENT DATE: 20170320
